FAERS Safety Report 13866440 (Version 1)
Quarter: 2017Q3

REPORT INFORMATION
  Report Type: Spontaneous
  Country: US (occurrence: US)
  Receive Date: 20170814
  Receipt Date: 20170814
  Transmission Date: 20171127
  Serious: No
  Sender: FDA-Public Use
  Company Number: US-ROCHE-662158

PATIENT
  Age: 6 Year
  Sex: Male
  Weight: 26.8 kg

DRUGS (1)
  1. TAMIFLU [Suspect]
     Active Substance: OSELTAMIVIR PHOSPHATE
     Indication: PROPHYLAXIS
     Route: 048
     Dates: start: 20091005, end: 20091014

REACTIONS (2)
  - Rash [Recovered/Resolved]
  - Erythema infectiosum [Recovered/Resolved]

NARRATIVE: CASE EVENT DATE: 20091010
